FAERS Safety Report 18364501 (Version 1)
Quarter: 2020Q4

REPORT INFORMATION
  Report Type: Report from Study
  Country: DE (occurrence: DE)
  Receive Date: 20201009
  Receipt Date: 20201009
  Transmission Date: 20210114
  Serious: Yes (Hospitalization, Other)
  Sender: FDA-Public Use
  Company Number: DE-AMGEN-DEUNI2020163028

PATIENT
  Age: 64 Year
  Sex: Female
  Weight: 83 kg

DRUGS (14)
  1. PANITUMUMAB [Suspect]
     Active Substance: PANITUMUMAB
     Dosage: 500 MILLIGRAM
     Route: 042
     Dates: start: 20200722
  2. FLUOROURACIL. [Suspect]
     Active Substance: FLUOROURACIL
     Indication: COLORECTAL CANCER METASTATIC
     Dosage: 760 MILLIGRAM
     Route: 040
     Dates: start: 20190902
  3. PANITUMUMAB [Suspect]
     Active Substance: PANITUMUMAB
     Indication: COLORECTAL CANCER METASTATIC
     Dosage: 500 MILLIGRAM
     Route: 042
     Dates: start: 20190918
  4. FOLINIC ACID [Suspect]
     Active Substance: LEUCOVORIN
     Dosage: 610 MILLIGRAM
     Route: 065
     Dates: start: 20191118
  5. PANTOPRAZOL [PANTOPRAZOLE] [Concomitant]
     Active Substance: PANTOPRAZOLE
     Indication: PROPHYLAXIS
     Dosage: 40 MILLIGRAM, QD
     Route: 048
     Dates: start: 20190704
  6. OXALIPLATIN. [Suspect]
     Active Substance: OXALIPLATIN
     Indication: COLORECTAL CANCER METASTATIC
     Dosage: 160 MILLIGRAM
     Route: 065
     Dates: start: 20190902
  7. FLUOROURACIL. [Suspect]
     Active Substance: FLUOROURACIL
     Dosage: 4575 MILLIGRAM
     Route: 042
     Dates: start: 20190902
  8. PANITUMUMAB [Suspect]
     Active Substance: PANITUMUMAB
     Dosage: 480 MILLIGRAM
     Route: 042
     Dates: start: 20200219
  9. FLUOROURACIL. [Suspect]
     Active Substance: FLUOROURACIL
     Dosage: 3650 MILLIGRAM
     Route: 042
     Dates: start: 20191118
  10. FOLINIC ACID [Suspect]
     Active Substance: LEUCOVORIN
     Indication: COLORECTAL CANCER METASTATIC
     Dosage: 760 MILLIGRAM
     Route: 065
     Dates: start: 20190902
  11. FLUOROURACIL. [Suspect]
     Active Substance: FLUOROURACIL
     Dosage: 0 MILLIGRAM
     Route: 040
     Dates: start: 20191202
  12. XARELTO [Concomitant]
     Active Substance: RIVAROXABAN
     Indication: PULMONARY EMBOLISM
     Dosage: 20 MILLIGRAM, QD
     Route: 048
     Dates: start: 20190704
  13. NOVALGIN (METAMIZOLE SODIUM) [Concomitant]
     Active Substance: METAMIZOLE SODIUM
     Indication: PAIN
     Dosage: 500 MILLIGRAM, AS NECESSARY
     Dates: start: 20190826
  14. PANITUMUMAB [Suspect]
     Active Substance: PANITUMUMAB
     Dosage: 450 MILLIGRAM
     Route: 042
     Dates: start: 20200624

REACTIONS (1)
  - Diarrhoea haemorrhagic [Recovered/Resolved]

NARRATIVE: CASE EVENT DATE: 20200907
